FAERS Safety Report 22061910 (Version 2)
Quarter: 2023Q1

REPORT INFORMATION
  Report Type: Spontaneous
  Country: US (occurrence: US)
  Receive Date: 20230304
  Receipt Date: 20230317
  Transmission Date: 20230417
  Serious: Yes (Other)
  Sender: FDA-Public Use
  Company Number: US-CTI BIOPHARMA-2023US03418

PATIENT

DRUGS (8)
  1. VONJO [Suspect]
     Active Substance: PACRITINIB
     Indication: Product used for unknown indication
     Dosage: UNK
  2. TAMSULOSIN [Concomitant]
     Active Substance: TAMSULOSIN
     Dosage: 0.4 MG, BID
  3. SPIRIVA RESPIMAT [Concomitant]
     Active Substance: TIOTROPIUM BROMIDE
     Dosage: 1.25 MICROGRAM, QD
  4. PANTOPRAZOLE [Concomitant]
     Active Substance: PANTOPRAZOLE
     Dosage: 40 MG, QD
  5. LISINOPRIL [Concomitant]
     Active Substance: LISINOPRIL
     Dosage: 10 MG, QD
  6. LEVOTHYROXINE SODIUM [Concomitant]
     Active Substance: LEVOTHYROXINE SODIUM
     Dosage: 110 MICROGRAM, QD
  7. FINASTERIDE [Concomitant]
     Active Substance: FINASTERIDE
     Dosage: 5 MG, QD
  8. ADVAIR HFA [Concomitant]
     Active Substance: FLUTICASONE PROPIONATE\SALMETEROL XINAFOATE

REACTIONS (1)
  - Urinary retention [Unknown]
